FAERS Safety Report 11610308 (Version 1)
Quarter: 2015Q4

REPORT INFORMATION
  Report Type: Spontaneous
  Country: FR (occurrence: FR)
  Receive Date: 20151008
  Receipt Date: 20151008
  Transmission Date: 20160304
  Serious: Yes (Hospitalization, Other)
  Sender: FDA-Public Use
  Company Number: FR-CIPLA LTD.-2015FR07761

PATIENT

DRUGS (3)
  1. LOXAPINE. [Suspect]
     Active Substance: LOXAPINE
     Indication: PSYCHOTIC DISORDER
     Dosage: 400 MG, QD
     Route: 048
  2. RISPERIDONE. [Suspect]
     Active Substance: RISPERIDONE
     Indication: PSYCHOTIC DISORDER
     Dosage: 4 MG, QD
     Route: 048
  3. LEVOMEPROMAZINE [Suspect]
     Active Substance: LEVOMEPROMAZINE
     Indication: PSYCHOTIC DISORDER
     Dosage: 300 MG, QD
     Route: 048

REACTIONS (9)
  - Renal tubular necrosis [Recovering/Resolving]
  - C-reactive protein increased [Unknown]
  - Muscle contracture [Unknown]
  - Agitation [Unknown]
  - Deep vein thrombosis [Recovering/Resolving]
  - Retinal oedema [Unknown]
  - Rhabdomyolysis [Recovered/Resolved]
  - Acute kidney injury [Recovering/Resolving]
  - Blood creatine phosphokinase increased [Unknown]
